FAERS Safety Report 9104179 (Version 2)
Quarter: 2013Q2

REPORT INFORMATION
  Report Type: Spontaneous
  Country: FR (occurrence: FR)
  Receive Date: 20130219
  Receipt Date: 20130614
  Transmission Date: 20140414
  Serious: Yes (Hospitalization, Other)
  Sender: FDA-Public Use
  Company Number: FR-PFIZER INC-2013058369

PATIENT
  Age: 63 Year
  Sex: Male

DRUGS (12)
  1. VIAGRA [Suspect]
     Indication: ERECTILE DYSFUNCTION
     Dosage: 100 MG, SINGLE
     Route: 048
     Dates: start: 20130111, end: 20130111
  2. VIAGRA [Suspect]
     Dosage: 50 MG, SINGLE
  3. PLAVIX [Concomitant]
  4. NOVORAPID [Concomitant]
  5. LANTUS [Concomitant]
  6. CRESTOR [Concomitant]
  7. LASILIX [Concomitant]
  8. DIFFU K [Concomitant]
  9. FORLAX [Concomitant]
  10. SPIRIVA [Concomitant]
  11. LEXOMIL [Concomitant]
  12. LYRICA [Concomitant]

REACTIONS (8)
  - Product counterfeit [Unknown]
  - Ischaemic stroke [Recovering/Resolving]
  - Paraesthesia oral [Recovering/Resolving]
  - Paraesthesia [Recovering/Resolving]
  - Muscular weakness [Recovering/Resolving]
  - Dysarthria [Recovering/Resolving]
  - Hemiparesis [Recovering/Resolving]
  - Drug ineffective [Unknown]
